FAERS Safety Report 17165819 (Version 2)
Quarter: 2019Q4

REPORT INFORMATION
  Report Type: Report from Study
  Country: US (occurrence: US)
  Receive Date: 20191217
  Receipt Date: 20191219
  Transmission Date: 20200122
  Serious: Yes (Hospitalization, Other)
  Sender: FDA-Public Use
  Company Number: NVSC2019US071597

PATIENT
  Sex: Male

DRUGS (1)
  1. AFINITOR [Suspect]
     Active Substance: EVEROLIMUS
     Indication: ANGIOMYOLIPOMA
     Dosage: 7.5 MG, QD
     Route: 048
     Dates: start: 20150814, end: 20170623

REACTIONS (5)
  - Cerebrovascular accident [Recovered/Resolved with Sequelae]
  - Abnormal behaviour [Unknown]
  - Weight increased [Unknown]
  - Functional gastrointestinal disorder [Unknown]
  - Consciousness fluctuating [Unknown]
